FAERS Safety Report 4554661-7 (Version None)
Quarter: 2004Q4

REPORT INFORMATION
  Report Type: 
  Country: None (occurrence: None)
  Receive Date: 20041227
  Receipt Date: 20040923
  Transmission Date: 20050328
  Serious: No
  Sender: FDA-Public Use
  Company Number: US092805

PATIENT
  Age: 39 Year
  Sex: Female
  Weight: 91 kg

DRUGS (6)
  1. SENSIPAR [Suspect]
     Indication: HYPERPARATHYROIDISM SECONDARY
     Dosage: 30 MG, 1 IN 1 DAYS, PO
     Route: 048
     Dates: start: 20040803
  2. EPOGEN [Concomitant]
  3. METOCLOPRAMIDE [Concomitant]
  4. LEVOFLOXACIN [Concomitant]
  5. PHOSLO [Concomitant]
  6. SEVELAMER HCL [Concomitant]

REACTIONS (1)
  - DIZZINESS [None]
